FAERS Safety Report 14509005 (Version 1)
Quarter: 2018Q1

REPORT INFORMATION
  Report Type: Spontaneous
  Country: US (occurrence: US)
  Receive Date: 20180209
  Receipt Date: 20180209
  Transmission Date: 20180509
  Serious: No
  Sender: FDA-Public Use
  Company Number: US-BIOGEN-2017BI00486689

PATIENT
  Sex: Male

DRUGS (1)
  1. TYSABRI [Suspect]
     Active Substance: NATALIZUMAB
     Indication: MULTIPLE SCLEROSIS
     Dosage: INFUSED OVER 1 HOUR
     Route: 065
     Dates: start: 20160425, end: 20171019

REACTIONS (4)
  - Drug ineffective [Unknown]
  - Mobility decreased [Recovered/Resolved]
  - General physical health deterioration [Not Recovered/Not Resolved]
  - Gait disturbance [Recovered/Resolved]
